FAERS Safety Report 10790299 (Version 1)
Quarter: 2015Q1

REPORT INFORMATION
  Report Type: Spontaneous
  Country: TR (occurrence: TR)
  Receive Date: 20150212
  Receipt Date: 20150212
  Transmission Date: 20150721
  Serious: Yes (Hospitalization)
  Sender: FDA-Public Use
  Company Number: PHHY2015TR011812

PATIENT
  Age: 14 Year
  Sex: Female
  Weight: 56 kg

DRUGS (1)
  1. DROSPIRENONE+ETHINYLESTRADIOL [Suspect]
     Active Substance: DROSPIRENONE\ETHINYL ESTRADIOL
     Indication: POLYCYSTIC OVARIES
     Route: 048

REACTIONS (9)
  - Pruritus [Unknown]
  - Kounis syndrome [Unknown]
  - Chest discomfort [Recovered/Resolved]
  - Myocardial ischaemia [Unknown]
  - Eosinophilia [Unknown]
  - Decreased appetite [Unknown]
  - Nausea [Unknown]
  - Chest pain [Recovered/Resolved]
  - Headache [Unknown]
